FAERS Safety Report 25469388 (Version 1)
Quarter: 2025Q2

REPORT INFORMATION
  Report Type: Spontaneous
  Country: FR (occurrence: FR)
  Receive Date: 20250623
  Receipt Date: 20250623
  Transmission Date: 20250717
  Serious: Yes (Hospitalization)
  Sender: MYLAN
  Company Number: None

PATIENT
  Age: 41 Year
  Sex: Female
  Weight: 92 kg

DRUGS (4)
  1. METHOTREXATE [Suspect]
     Active Substance: METHOTREXATE
     Indication: Gestational trophoblastic tumour
     Dosage: 100 MILLIGRAM,Q2W,(100 MG EVERY 2 WEEKS)
     Dates: start: 20250428
  2. METHOTREXATE [Suspect]
     Active Substance: METHOTREXATE
     Dosage: 100 MILLIGRAM,Q2W,(100 MG EVERY 2 WEEKS)
     Route: 030
     Dates: start: 20250428
  3. METHOTREXATE [Suspect]
     Active Substance: METHOTREXATE
     Dosage: 100 MILLIGRAM,Q2W,(100 MG EVERY 2 WEEKS)
     Route: 030
     Dates: start: 20250428
  4. METHOTREXATE [Suspect]
     Active Substance: METHOTREXATE
     Dosage: 100 MILLIGRAM,Q2W,(100 MG EVERY 2 WEEKS)
     Dates: start: 20250428

REACTIONS (1)
  - Colitis [Recovering/Resolving]

NARRATIVE: CASE EVENT DATE: 20250518
